FAERS Safety Report 17726645 (Version 2)
Quarter: 2020Q2

REPORT INFORMATION
  Report Type: Spontaneous
  Country: US (occurrence: US)
  Receive Date: 20200430
  Receipt Date: 20200604
  Transmission Date: 20200714
  Serious: No
  Sender: FDA-Public Use
  Company Number: US-ASTRAZENECA-2020SE55484

PATIENT
  Sex: Male
  Weight: 87.1 kg

DRUGS (1)
  1. SYMBICORT [Suspect]
     Active Substance: BUDESONIDE\FORMOTEROL FUMARATE DIHYDRATE
     Indication: DYSPNOEA
     Dosage: SYMBICORT 160/4.5 MCG 2 PUFFS EVERY MORNING AND 2 PUFFS AT NIGHT
     Route: 055

REACTIONS (3)
  - Device issue [Unknown]
  - Dyspnoea [Unknown]
  - Product dose omission [Unknown]
